FAERS Safety Report 10630986 (Version 1)
Quarter: 2014Q4

REPORT INFORMATION
  Report Type: Spontaneous
  Country: US (occurrence: US)
  Receive Date: 20141205
  Receipt Date: 20141205
  Transmission Date: 20150529
  Serious: No
  Sender: FDA-Public Use
  Company Number: US-BRISTOL-MYERS SQUIBB COMPANY-21455142

PATIENT
  Age: 61 Year
  Sex: Female
  Weight: 117 kg

DRUGS (7)
  1. ELIQUIS [Suspect]
     Active Substance: APIXABAN
     Indication: THROMBOSIS
     Dates: start: 2014
  2. BACLOFEN. [Concomitant]
     Active Substance: BACLOFEN
  3. LASIX [Concomitant]
     Active Substance: FUROSEMIDE
  4. TIZANIDINE (TIZANIDINE) [Concomitant]
     Active Substance: TIZANIDINE
  5. GABAPENTIN. [Concomitant]
     Active Substance: GABAPENTIN
  6. SENNA [Concomitant]
     Active Substance: SENNA LEAF\SENNOSIDES\SENNOSIDES A AND B
  7. SIMVASTATIN. [Concomitant]
     Active Substance: SIMVASTATIN

REACTIONS (2)
  - Myalgia [Recovering/Resolving]
  - Musculoskeletal stiffness [Recovering/Resolving]
